FAERS Safety Report 25712160 (Version 1)
Quarter: 2025Q3

REPORT INFORMATION
  Report Type: Report from Study
  Country: US (occurrence: US)
  Receive Date: 20250821
  Receipt Date: 20250821
  Transmission Date: 20251020
  Serious: Yes (Other)
  Sender: AURINIA PHARMACEUTICALS
  Company Number: US-OTSUKA PHARMACEUTICAL NETHERLANDS B.V.-AUR-009247

PATIENT
  Age: 32 Year
  Sex: Female

DRUGS (6)
  1. LUPKYNIS [Suspect]
     Active Substance: VOCLOSPORIN
     Indication: Systemic lupus erythematosus
     Dosage: 23.7MG BY MOUTH TWICE DAILY
     Route: 048
     Dates: start: 20241119
  2. LUPKYNIS [Suspect]
     Active Substance: VOCLOSPORIN
     Dosage: 15.8 MILLIGRAM, BID
     Route: 048
  3. LUPKYNIS [Suspect]
     Active Substance: VOCLOSPORIN
     Dosage: 3 PILLS A DAY RIGHT NOW
     Route: 048
  4. CELLCEPT [Suspect]
     Active Substance: MYCOPHENOLATE MOFETIL
     Indication: Product used for unknown indication
  5. CELLCEPT [Suspect]
     Active Substance: MYCOPHENOLATE MOFETIL
  6. BENLYSTA [Suspect]
     Active Substance: BELIMUMAB
     Indication: Product used for unknown indication

REACTIONS (10)
  - Hepatotoxicity [Not Recovered/Not Resolved]
  - Seizure [Unknown]
  - Localised infection [Recovering/Resolving]
  - Abdominal distension [Unknown]
  - Faeces discoloured [Unknown]
  - Constipation [Unknown]
  - Hepatic pain [Recovered/Resolved]
  - Feeding disorder [Unknown]
  - Mouth ulceration [Recovering/Resolving]
  - Intentional underdose [Unknown]

NARRATIVE: CASE EVENT DATE: 20250601
